FAERS Safety Report 4953474-1 (Version None)
Quarter: 2006Q1

REPORT INFORMATION
  Report Type: 
  Country: None (occurrence: None)
  Receive Date: 20060324
  Receipt Date: 20060313
  Transmission Date: 20060701
  Serious: Yes (Other)
  Sender: FDA-Public Use
  Company Number: GB-AVENTIS-200612621GDDC

PATIENT
  Age: 34 Year
  Sex: Female

DRUGS (1)
  1. CLOMID [Suspect]

REACTIONS (2)
  - OVARIAN CANCER [None]
  - TREATMENT NONCOMPLIANCE [None]
